FAERS Safety Report 17830139 (Version 3)
Quarter: 2020Q2

REPORT INFORMATION
  Report Type: Report from Study
  Country: ZA (occurrence: ZA)
  Receive Date: 20200527
  Receipt Date: 20200612
  Transmission Date: 20200714
  Serious: Yes (Hospitalization, Disabling, Other)
  Sender: FDA-Public Use
  Company Number: NVSC2020ZA137416

PATIENT
  Age: 43 Year
  Sex: Female

DRUGS (1)
  1. TUVIGIN [Suspect]
     Active Substance: FINGOLIMOD HYDROCHLORIDE
     Indication: MULTIPLE SCLEROSIS
     Dosage: 0.5 MG, QD
     Route: 048
     Dates: start: 20200514, end: 20200521

REACTIONS (10)
  - Balance disorder [Unknown]
  - Dyspnoea [Not Recovered/Not Resolved]
  - Muscle spasticity [Recovered/Resolved]
  - Paresis [Recovered/Resolved]
  - Multiple sclerosis relapse [Unknown]
  - Gait inability [Not Recovered/Not Resolved]
  - Dizziness [Unknown]
  - Hypoaesthesia [Recovered/Resolved]
  - Somnolence [Not Recovered/Not Resolved]
  - Bradycardia [Unknown]

NARRATIVE: CASE EVENT DATE: 20200514
